FAERS Safety Report 8142509-3 (Version None)
Quarter: 2012Q1

REPORT INFORMATION
  Report Type: 
  Country: None (occurrence: None)
  Receive Date: 20120103
  Receipt Date: 20110823
  Transmission Date: 20120608
  Serious: No
  Sender: FDA-Public Use
  Company Number: AE-2011-001072

PATIENT
  Sex: Female
  Weight: 57.6068 kg

DRUGS (5)
  1. RIBAVIRIN [Concomitant]
  2. METOPROLOL TARTRATE [Concomitant]
  3. PEGASYS [Concomitant]
  4. MVI (MULTIVITAMINS) [Concomitant]
  5. INCIVEK [Suspect]
     Dosage: 2250 MG (750 MG, 3 IN 1 D), ORAL
     Route: 048
     Dates: start: 20110808

REACTIONS (1)
  - ANORECTAL DISCOMFORT [None]
